FAERS Safety Report 12726799 (Version 1)
Quarter: 2016Q3

REPORT INFORMATION
  Report Type: Spontaneous
  Country: US (occurrence: US)
  Receive Date: 20160908
  Receipt Date: 20160908
  Transmission Date: 20161109
  Serious: No
  Sender: FDA-Public Use
  Company Number: US-ASTRAZENECA-2016SE79779

PATIENT
  Sex: Male

DRUGS (1)
  1. SEROQUEL [Suspect]
     Active Substance: QUETIAPINE FUMARATE
     Dosage: SPLIT 25 MG TWICE A DAY
     Route: 048

REACTIONS (3)
  - Hallucination [Unknown]
  - Delusion [Unknown]
  - Off label use [Unknown]
